FAERS Safety Report 7950773-6 (Version None)
Quarter: 2011Q4

REPORT INFORMATION
  Report Type: 
  Country: None (occurrence: None)
  Receive Date: 20111125
  Receipt Date: 20111113
  Transmission Date: 20120403
  Serious: Yes (Hospitalization, Other)
  Sender: FDA-Public Use
  Company Number: 2011SP048056

PATIENT
  Age: 53 Year
  Sex: Male
  Weight: 86.1834 kg

DRUGS (4)
  1. PEG-INTRON [Suspect]
     Indication: HEPATITIS C
     Dates: start: 20110907
  2. RIBAVIRIN [Suspect]
     Indication: HEPATITIS C
     Dosage: 1 DF,BID, QD
     Dates: start: 20110907
  3. METHADONE [Concomitant]
  4. RIBAVIRIN [Suspect]
     Indication: HEPATITIS C
     Dates: start: 20110907

REACTIONS (11)
  - NAUSEA [None]
  - SOMNOLENCE [None]
  - WEIGHT DECREASED [None]
  - ANAEMIA [None]
  - CRYING [None]
  - WHITE BLOOD CELL COUNT DECREASED [None]
  - DIARRHOEA [None]
  - ANXIETY [None]
  - BACK PAIN [None]
  - CATHETER SITE ERYTHEMA [None]
  - MOOD SWINGS [None]
